FAERS Safety Report 19313165 (Version 1)
Quarter: 2021Q2

REPORT INFORMATION
  Report Type: Spontaneous
  Country: CN (occurrence: CN)
  Receive Date: 20210527
  Receipt Date: 20210527
  Transmission Date: 20210717
  Serious: Yes (Other)
  Sender: FDA-Public Use
  Company Number: CN-AMGEN-CHNCT2021078832

PATIENT

DRUGS (3)
  1. G?LASTA [Suspect]
     Active Substance: PEGFILGRASTIM
     Indication: ACUTE MYELOID LEUKAEMIA RECURRENT
     Dosage: 300 MICROGRAM, QD FOUR WEEKS IS A COURSE OF TREATMENT; PATIENTS WERE TREATED FOR TWO COURSES
     Route: 058
  2. CYTARABINE. [Suspect]
     Active Substance: CYTARABINE
     Indication: ACUTE MYELOID LEUKAEMIA RECURRENT
     Dosage: UNK UNK, QD FOUR WEEKS IS A COURSE OF TREATMENT; PATIENTS WERE TREATED FOR TWO COURSES
     Route: 041
  3. GRAN [Suspect]
     Active Substance: FILGRASTIM
     Indication: ACUTE MYELOID LEUKAEMIA RECURRENT
     Dosage: 300 MICROGRAM, QD FOUR WEEKS IS A COURSE OF TREATMENT; PATIENTS WERE TREATED FOR TWO COURSES
     Route: 058

REACTIONS (5)
  - Mucocutaneous haemorrhage [Unknown]
  - Drug-induced liver injury [Unknown]
  - Infection [Unknown]
  - Neutropenia [Unknown]
  - Thrombocytopenia [Unknown]
